FAERS Safety Report 14092246 (Version 1)
Quarter: 2017Q4

REPORT INFORMATION
  Report Type: Spontaneous
  Country: US (occurrence: US)
  Receive Date: 20171016
  Receipt Date: 20171016
  Transmission Date: 20180321
  Serious: No
  Sender: FDA-Public Use
  Company Number: US-009507513-1709USA009174

PATIENT
  Age: 53 Year
  Sex: Female

DRUGS (4)
  1. SYMBICORT [Concomitant]
     Active Substance: BUDESONIDE\FORMOTEROL FUMARATE DIHYDRATE
     Dosage: UNK
  2. ATORVASTATIN [Concomitant]
     Active Substance: ATORVASTATIN
     Dosage: UNK
  3. PROVENTIL [Suspect]
     Active Substance: ALBUTEROL
     Indication: DYSPNOEA
     Dosage: 90 MICROGRAM/ 2 PUFFS, QID
     Route: 055
     Dates: start: 2008
  4. PROVENTIL [Suspect]
     Active Substance: ALBUTEROL
     Dosage: 90 MICROGRAM/ 2 PUFFS, QID
     Route: 055
     Dates: start: 2008

REACTIONS (4)
  - Dyspnoea [Not Recovered/Not Resolved]
  - Drug dose omission [Unknown]
  - Product quality issue [Unknown]
  - Cough [Not Recovered/Not Resolved]

NARRATIVE: CASE EVENT DATE: 201707
